FAERS Safety Report 14343976 (Version 1)
Quarter: 2018Q1

REPORT INFORMATION
  Report Type: Spontaneous
  Country: US (occurrence: US)
  Receive Date: 20180102
  Receipt Date: 20180102
  Transmission Date: 20180509
  Serious: No
  Sender: FDA-Public Use
  Company Number: US-BAYER-2017-247849

PATIENT
  Age: 74 Year
  Sex: Female
  Weight: 100 kg

DRUGS (4)
  1. DULCOLAX (BISACODYL) [Concomitant]
     Active Substance: BISACODYL
  2. MIRALAX [Suspect]
     Active Substance: POLYETHYLENE GLYCOL 3350
     Indication: COLONOSCOPY
     Dosage: 250G IN 64OZ GATORADE DOSE
     Route: 048
     Dates: start: 20171221
  3. VANCOMYCIN [Concomitant]
     Active Substance: VANCOMYCIN
  4. SIMETHICONE (DIMETHICONE) [Concomitant]
     Active Substance: DIMETHICONE

REACTIONS (7)
  - Circumstance or information capable of leading to medication error [Unknown]
  - Product use issue [None]
  - Wrong technique in product usage process [Unknown]
  - Off label use [None]
  - Product use in unapproved indication [Unknown]
  - Product prescribing issue [Unknown]
  - Drug administration error [None]

NARRATIVE: CASE EVENT DATE: 20171221
